FAERS Safety Report 7578861-7 (Version None)
Quarter: 2011Q2

REPORT INFORMATION
  Report Type: 
  Country: None (occurrence: None)
  Receive Date: 20110628
  Receipt Date: 20110628
  Transmission Date: 20111010
  Serious: Yes (Other)
  Sender: FDA-Public Use
  Company Number: US-JNJFOC-20110604429

PATIENT
  Age: 75 Year
  Sex: Female
  Weight: 74.84 kg

DRUGS (8)
  1. PLAVIX [Concomitant]
     Indication: ANTICOAGULANT THERAPY
     Route: 065
  2. ZYRTEC [Suspect]
     Route: 048
  3. TOPROL-XL [Concomitant]
     Indication: HYPERTENSION
     Route: 065
  4. ZYRTEC [Suspect]
     Indication: SEASONAL ALLERGY
     Route: 048
     Dates: start: 20100901
  5. BENICAR [Concomitant]
     Indication: HYPERTENSION
     Route: 065
     Dates: start: 20110401
  6. FEXOFENADINE [Concomitant]
     Indication: MULTIPLE ALLERGIES
     Route: 065
  7. FLUTICASONE PROPIONATE [Concomitant]
     Indication: MULTIPLE ALLERGIES
     Route: 045
  8. DILTIAZEM [Concomitant]
     Indication: HYPERTENSION
     Route: 065

REACTIONS (2)
  - SLEEP TERROR [None]
  - HALLUCINATION [None]
